FAERS Safety Report 16984664 (Version 1)
Quarter: 2019Q4

REPORT INFORMATION
  Report Type: Spontaneous
  Country: GB (occurrence: FR)
  Receive Date: 20191101
  Receipt Date: 20191101
  Transmission Date: 20200122
  Serious: Yes (Hospitalization)
  Sender: FDA-Public Use
  Company Number: FR-BAYER-2019-193381

PATIENT
  Age: 14 Year
  Sex: Female

DRUGS (6)
  1. BACTRIM [Suspect]
     Active Substance: SULFAMETHOXAZOLE\TRIMETHOPRIM
     Indication: INFECTION PROPHYLAXIS
     Dosage: 3 DF, QD
     Route: 048
     Dates: start: 20180905
  2. SMECTA [Concomitant]
     Active Substance: MONTMORILLONITE
     Dosage: 6 G, QD
     Route: 048
     Dates: end: 20180905
  3. VFEND [Suspect]
     Active Substance: VORICONAZOLE
     Indication: ASPERGILLUS INFECTION
     Dosage: 600 MG, QD
     Route: 048
     Dates: start: 20180803, end: 20180907
  4. NEXAVAR [Suspect]
     Active Substance: SORAFENIB
     Indication: GENE MUTATION
     Dosage: 800 MG, QD
     Route: 048
     Dates: start: 201803
  5. ORACILLINE [PHENOXYMETHYLPENICILLIN BENZATHINE] [Concomitant]
     Active Substance: PENICILLIN V BENZATHINE
     Dosage: 2 DF, QD
     Route: 048
     Dates: start: 201711
  6. ORACILLINE [PHENOXYMETHYLPENICILLIN] [Concomitant]
     Active Substance: PENICILLIN V
     Dosage: 2 DF, QD
     Route: 048
     Dates: start: 201711

REACTIONS (2)
  - Transaminases increased [Recovered/Resolved]
  - Gamma-glutamyltransferase increased [Recovering/Resolving]

NARRATIVE: CASE EVENT DATE: 20180820
